FAERS Safety Report 7397412-3 (Version None)
Quarter: 2011Q2

REPORT INFORMATION
  Report Type: 
  Country: None (occurrence: None)
  Receive Date: 20110406
  Receipt Date: 20110328
  Transmission Date: 20111010
  Serious: Yes (Hospitalization)
  Sender: FDA-Public Use
  Company Number: US-ASTRAZENECA-2010SE30112

PATIENT
  Sex: Female

DRUGS (19)
  1. ANTI GAS PILLS [Concomitant]
     Route: 048
  2. AVAPRO [Concomitant]
     Route: 048
  3. HUMALOG [Concomitant]
     Indication: DIABETES MELLITUS
     Dosage: 5 UNITS FOR EVERY 50 POINTS BEFORE MEALS AND AT BEDTIME
  4. TRILEPTAL [Concomitant]
     Indication: BIPOLAR DISORDER
     Route: 048
  5. DOXEPIN [Concomitant]
     Indication: BIPOLAR DISORDER
     Route: 048
  6. DIAZEPAM [Concomitant]
     Indication: BIPOLAR DISORDER
     Route: 048
  7. ANTI GAS PILLS [Concomitant]
     Route: 048
  8. SPIRONOLACTONE [Concomitant]
     Dosage: 1/2 TABLET TWICE DAILY
     Route: 048
  9. METOPROLOL TARTRATE [Concomitant]
     Route: 048
  10. LANTUS [Concomitant]
     Indication: DIABETES MELLITUS
     Dosage: 50 UNITS EVERY PM AT 8:00
  11. LISINOPRIL [Suspect]
     Route: 048
  12. TEKTURNA [Concomitant]
     Route: 048
  13. PLAVIX [Concomitant]
     Dosage: 37-1/2 MG DAILY
     Route: 048
  14. LEVOTHROID [Concomitant]
     Route: 048
  15. NIFEDIPINE [Concomitant]
     Route: 048
  16. LORATADINE [Concomitant]
     Route: 048
  17. TOPROL-XL [Suspect]
     Indication: HYPERTENSION
     Route: 048
  18. CRESTOR [Suspect]
     Route: 048
  19. POTASSIUM CHLOR [Concomitant]
     Route: 048

REACTIONS (2)
  - DRUG HYPERSENSITIVITY [None]
  - HYPOTENSION [None]
